FAERS Safety Report 6566740-3 (Version None)
Quarter: 2010Q1

REPORT INFORMATION
  Report Type: 
  Country: None (occurrence: None)
  Receive Date: 20100202
  Receipt Date: 20100121
  Transmission Date: 20100710
  Serious: Yes (Hospitalization)
  Sender: FDA-Public Use
  Company Number: TW-SANOFI-AVENTIS-2010SA004690

PATIENT
  Age: 82 Year
  Sex: Male
  Weight: 60 kg

DRUGS (6)
  1. DOCETAXEL [Suspect]
     Indication: PROSTATE CANCER
     Route: 042
     Dates: start: 20091228, end: 20091228
  2. BLINDED THERAPY [Suspect]
     Indication: PROSTATE CANCER
     Route: 048
     Dates: start: 20090713, end: 20091227
  3. PREDNISOLONE [Suspect]
     Indication: PROSTATE CANCER
     Route: 048
     Dates: start: 20090713
  4. ZOLPIDEM [Concomitant]
     Indication: INSOMNIA
     Dates: start: 20080721, end: 20100104
  5. DIETHYL-STILBESTROL TAB [Concomitant]
     Indication: PROSTATE CANCER
     Dates: start: 20080721
  6. GOSERELIN [Concomitant]
     Indication: PROSTATE CANCER
     Dates: start: 20070409

REACTIONS (2)
  - DIABETIC KETOACIDOSIS [None]
  - HYDROCEPHALUS [None]
